FAERS Safety Report 10073992 (Version 1)
Quarter: 2014Q2

REPORT INFORMATION
  Report Type: Spontaneous
  Country: IN (occurrence: IN)
  Receive Date: 20140413
  Receipt Date: 20140413
  Transmission Date: 20141212
  Serious: Yes (Hospitalization)
  Sender: FDA-Public Use
  Company Number: IN-MYLANLABS-2014S1007762

PATIENT
  Age: 58 Year
  Sex: Female

DRUGS (1)
  1. VALACICLOVIR [Suspect]
     Indication: HERPES VIRUS INFECTION
     Route: 065

REACTIONS (7)
  - Neurotoxicity [Recovered/Resolved]
  - Somnolence [Recovered/Resolved]
  - Restlessness [Recovered/Resolved]
  - Logorrhoea [Recovered/Resolved]
  - Confusional state [Recovered/Resolved]
  - Irritability [Recovered/Resolved]
  - Depressed level of consciousness [Recovered/Resolved]
